FAERS Safety Report 7223310-1 (Version None)
Quarter: 2011Q1

REPORT INFORMATION
  Report Type: 
  Country: None (occurrence: None)
  Receive Date: 20110112
  Receipt Date: 20100422
  Transmission Date: 20110831
  Serious: No
  Sender: FDA-Public Use
  Company Number: US-ALLERGAN-1005309US

PATIENT
  Age: 85 Year
  Sex: Female

DRUGS (7)
  1. METOPROLOL [Concomitant]
     Dosage: 25 MG, QD
  2. RESTASIS [Suspect]
     Indication: DRY EYE
     Dosage: 1 GTT, BID
     Route: 047
     Dates: start: 20100101
  3. DETROL [Concomitant]
     Dosage: 4 MG, QD
  4. ASPIRIN [Concomitant]
     Dosage: 81 MG, BID
  5. DIOVAN [Concomitant]
     Dosage: 160 MG, QD
  6. VITAMIN D [Concomitant]
     Dosage: 1000 MG, QD
  7. CENTRUM SILVER [Concomitant]

REACTIONS (2)
  - EYE IRRITATION [None]
  - EYE DISCHARGE [None]
